FAERS Safety Report 13703249 (Version 1)
Quarter: 2017Q2

REPORT INFORMATION
  Report Type: Spontaneous
  Country: CN (occurrence: CN)
  Receive Date: 20170629
  Receipt Date: 20170629
  Transmission Date: 20170830
  Serious: Yes (Life-Threatening)
  Sender: FDA-Public Use
  Company Number: CN-FRESENIUS KABI-FK201705490

PATIENT
  Age: 52 Year
  Sex: Male

DRUGS (2)
  1. INTRALIPID [Suspect]
     Active Substance: EGG PHOSPHOLIPIDS\GLYCERIN\SOYBEAN OIL
     Indication: NUTRITIONAL SUPPLEMENTATION
     Route: 041
     Dates: start: 20170306, end: 20170307
  2. NOVAMIN (AMINO ACIDS NOS) [Suspect]
     Active Substance: AMINO ACIDS
     Indication: NUTRITIONAL SUPPLEMENTATION
     Route: 041

REACTIONS (2)
  - Anaphylactic shock [Recovering/Resolving]
  - Productive cough [None]

NARRATIVE: CASE EVENT DATE: 20170307
